FAERS Safety Report 4808710-9 (Version None)
Quarter: 2005Q4

REPORT INFORMATION
  Report Type: 
  Country: None (occurrence: None)
  Receive Date: 20051021
  Receipt Date: 20021025
  Transmission Date: 20060501
  Serious: Yes (Hospitalization, Other)
  Sender: FDA-Public Use
  Company Number: US_021088794

PATIENT
  Age: 79 Year
  Sex: Female

DRUGS (7)
  1. ZYPREXA [Suspect]
     Indication: DELUSION
     Dosage: 2.5 MG/DAY
     Route: 048
     Dates: start: 20020917, end: 20020919
  2. ZYPREXA [Suspect]
     Indication: HALLUCINATION
     Dosage: 2.5 MG/DAY
     Route: 048
     Dates: start: 20020917, end: 20020919
  3. ZYPREXA [Suspect]
     Indication: SCHIZOPHRENIA
     Dosage: 2.5 MG/DAY
     Route: 048
     Dates: start: 20020917, end: 20020919
  4. RISPERDAL [Concomitant]
  5. HALOPERIDOL [Concomitant]
  6. GRAMALIL                 (TIAPRIDE HYDROCHLORIDE) [Concomitant]
  7. AKINETON [Concomitant]

REACTIONS (6)
  - ALANINE AMINOTRANSFERASE INCREASED [None]
  - ASPARTATE AMINOTRANSFERASE INCREASED [None]
  - BLOOD LACTATE DEHYDROGENASE INCREASED [None]
  - CONVULSION [None]
  - NEUROLEPTIC MALIGNANT SYNDROME [None]
  - WHITE BLOOD CELL COUNT INCREASED [None]
